FAERS Safety Report 18409844 (Version 1)
Quarter: 2020Q4

REPORT INFORMATION
  Report Type: Spontaneous
  Country: US (occurrence: US)
  Receive Date: 20201021
  Receipt Date: 20201021
  Transmission Date: 20210114
  Serious: No
  Sender: FDA-Public Use
  Company Number: None

PATIENT
  Age: 63 Year
  Sex: Female

DRUGS (5)
  1. COSENTYX [Suspect]
     Active Substance: SECUKINUMAB
     Indication: PSORIATIC ARTHROPATHY
     Dosage: ?          OTHER FREQUENCY:EVERY 4 WEEKS;?
     Route: 058
     Dates: start: 20200629
  2. METOPROL TART [Concomitant]
  3. COZAAR [Concomitant]
     Active Substance: LOSARTAN POTASSIUM
  4. NAPROXEN. [Concomitant]
     Active Substance: NAPROXEN
  5. HYDROCHLOROT [Concomitant]
     Active Substance: HYDROCHLOROTHIAZIDE

REACTIONS (3)
  - Condition aggravated [None]
  - Sensitivity to weather change [None]
  - Fungal infection [None]

NARRATIVE: CASE EVENT DATE: 20201020
